FAERS Safety Report 15675423 (Version 9)
Quarter: 2022Q2

REPORT INFORMATION
  Report Type: Report from Study
  Country: JP (occurrence: JP)
  Receive Date: 20181130
  Receipt Date: 20220531
  Transmission Date: 20220720
  Serious: Yes (Hospitalization, Other)
  Sender: FDA-Public Use
  Company Number: JP-VIIVHC-JP2017JPN088083AA

PATIENT

DRUGS (10)
  1. ABACAVIR SULFATE\DOLUTEGRAVIR SODIUM\LAMIVUDINE [Suspect]
     Active Substance: ABACAVIR SULFATE\DOLUTEGRAVIR SODIUM\LAMIVUDINE
     Indication: HIV infection
     Dosage: 1 DF, 1D
     Route: 048
     Dates: start: 20160303, end: 20190529
  2. JULUCA [Concomitant]
     Active Substance: DOLUTEGRAVIR SODIUM\RILPIVIRINE HYDROCHLORIDE
     Indication: HIV infection
     Dosage: 1 DF, 1D
     Route: 048
     Dates: start: 20190530
  3. EPZICOM [Concomitant]
     Active Substance: ABACAVIR SULFATE\LAMIVUDINE
     Indication: HIV infection
     Dosage: 1 DF, 1D
     Dates: start: 20131204, end: 20160302
  4. NORVIR [Concomitant]
     Active Substance: RITONAVIR
     Indication: HIV infection
     Dosage: 100 MG, 1D
     Dates: start: 20131204, end: 20160302
  5. DARUNAVIR [Concomitant]
     Active Substance: DARUNAVIR
     Indication: HIV infection
     Dosage: 800 MG, QD
     Dates: start: 20131204, end: 20160302
  6. AMARYL TABLETS [Concomitant]
     Dosage: UNK
     Dates: end: 20191113
  7. JANUVIA TABLET (SITAGLIPTIN PHOSPHATE HYDRATE) [Concomitant]
     Dosage: UNK
     Dates: end: 20170723
  8. LINAGLIPTIN [Concomitant]
     Active Substance: LINAGLIPTIN
     Dosage: UNK
     Dates: start: 20170724
  9. GLICLAZIDE [Concomitant]
     Active Substance: GLICLAZIDE
     Dosage: UNK
     Route: 048
     Dates: start: 20191113, end: 20201125
  10. MITIGLINIDE [Concomitant]
     Active Substance: MITIGLINIDE
     Dosage: UNK
     Dates: start: 20201125

REACTIONS (13)
  - Renal impairment [Not Recovered/Not Resolved]
  - Hypertension [Not Recovered/Not Resolved]
  - Dyslipidaemia [Not Recovered/Not Resolved]
  - Anaemia [Not Recovered/Not Resolved]
  - Basal cell carcinoma [Recovered/Resolved]
  - Osteoporosis [Not Recovered/Not Resolved]
  - Tinea pedis [Not Recovered/Not Resolved]
  - Urine cytology abnormal [Not Recovered/Not Resolved]
  - Dysuria [Not Recovered/Not Resolved]
  - Cardiac failure congestive [Not Recovered/Not Resolved]
  - Left ventricular dysfunction [Not Recovered/Not Resolved]
  - Bundle branch block left [Not Recovered/Not Resolved]
  - Hyperuricaemia [Not Recovered/Not Resolved]

NARRATIVE: CASE EVENT DATE: 20160413
